FAERS Safety Report 18724987 (Version 1)
Quarter: 2021Q1

REPORT INFORMATION
  Report Type: Spontaneous
  Country: US (occurrence: US)
  Receive Date: 20210111
  Receipt Date: 20210111
  Transmission Date: 20210419
  Serious: No
  Sender: FDA-Public Use
  Company Number: None

PATIENT
  Age: 48 Year
  Sex: Female
  Weight: 55.6 kg

DRUGS (1)
  1. BAMLANIVIMAB. [Suspect]
     Active Substance: BAMLANIVIMAB
     Indication: COVID-19
     Route: 041
     Dates: start: 20210108, end: 20210108

REACTIONS (6)
  - Feeling abnormal [None]
  - Nausea [None]
  - Headache [None]
  - Hypertension [None]
  - Infusion related reaction [None]
  - Vomiting [None]

NARRATIVE: CASE EVENT DATE: 20210108
